FAERS Safety Report 21599525 (Version 3)
Quarter: 2022Q4

REPORT INFORMATION
  Report Type: Report from Study
  Country: CA (occurrence: CA)
  Receive Date: 20221115
  Receipt Date: 20221207
  Transmission Date: 20230113
  Serious: Yes (Death, Hospitalization, Other)
  Sender: FDA-Public Use
  Company Number: CA-GILEAD-2022-0593424

PATIENT
  Age: 67 Year
  Sex: Female

DRUGS (2)
  1. SACITUZUMAB GOVITECAN [Suspect]
     Active Substance: SACITUZUMAB GOVITECAN
     Indication: Triple negative breast cancer
     Dosage: 570 MG
     Route: 042
     Dates: start: 20220802, end: 20220913
  2. SACITUZUMAB GOVITECAN [Suspect]
     Active Substance: SACITUZUMAB GOVITECAN
     Dosage: CYCLE 4, DAY 1
     Route: 042
     Dates: start: 20221102, end: 20221102

REACTIONS (4)
  - Metastases to liver [Fatal]
  - Diverticulitis [Unknown]
  - Neutropenia [Unknown]
  - Hypercalcaemia [Unknown]

NARRATIVE: CASE EVENT DATE: 20221101
